FAERS Safety Report 6313756-8 (Version None)
Quarter: 2009Q3

REPORT INFORMATION
  Report Type: 
  Country: None (occurrence: None)
  Receive Date: 20090818
  Receipt Date: 20081006
  Transmission Date: 20100115
  Serious: Yes (Other)
  Sender: FDA-Public Use
  Company Number: US-BRISTOL-MYERS SQUIBB COMPANY-14346571

PATIENT
  Age: 54 Year
  Sex: Male

DRUGS (3)
  1. REYATAZ [Suspect]
     Indication: HIV INFECTION
     Route: 048
     Dates: start: 20070215
  2. RITONAVIR [Concomitant]
  3. TRUVADA [Concomitant]
     Dosage: 1 DOSAGE FORM = 1 TABLET.

REACTIONS (1)
  - BLOOD BILIRUBIN INCREASED [None]
